FAERS Safety Report 15124120 (Version 1)
Quarter: 2018Q3

REPORT INFORMATION
  Report Type: Spontaneous
  Country: US (occurrence: US)
  Receive Date: 20180710
  Receipt Date: 20180710
  Transmission Date: 20181010
  Serious: Yes (Other)
  Sender: FDA-Public Use
  Company Number: US-AMGEN-USASP2018092059

PATIENT
  Sex: Female

DRUGS (7)
  1. EMPLICITI [Suspect]
     Active Substance: ELOTUZUMAB
     Indication: PLASMA CELL MYELOMA
     Dosage: UNK, EVERY 2 WEEK
     Route: 042
     Dates: start: 201802
  2. DECADRON [Concomitant]
     Active Substance: DEXAMETHASONE
     Indication: PLASMA CELL MYELOMA
     Dosage: UNK
  3. REVLIMID [Suspect]
     Active Substance: LENALIDOMIDE
     Indication: PLASMA CELL MYELOMA
     Dosage: UNK
     Route: 065
  4. BENADRYL [Suspect]
     Active Substance: DIPHENHYDRAMINE HYDROCHLORIDE
     Indication: PRODUCT USED FOR UNKNOWN INDICATION
     Dosage: UNK
     Route: 042
     Dates: start: 2018, end: 2018
  5. KYPROLIS [Suspect]
     Active Substance: CARFILZOMIB
     Indication: PLASMA CELL MYELOMA
     Dosage: UNK, (TWO DAYS BACK TO BACK, THREE WEEKS OUT OF FOUR)
     Route: 042
  6. BENADRYL [Suspect]
     Active Substance: DIPHENHYDRAMINE HYDROCHLORIDE
     Dosage: DOSE REDUCED TO HALF, UNK
     Route: 042
     Dates: start: 2018
  7. DECADRON [Concomitant]
     Active Substance: DEXAMETHASONE
     Dosage: 40 MG, QWK
     Route: 042

REACTIONS (22)
  - Feeling abnormal [Unknown]
  - Discomfort [Unknown]
  - Abdominal discomfort [Unknown]
  - Dizziness [Unknown]
  - Bronchitis [Recovering/Resolving]
  - Quality of life decreased [Unknown]
  - Somnolence [Unknown]
  - Asthenia [Unknown]
  - Constipation [Unknown]
  - Fatigue [Unknown]
  - Agitation [Unknown]
  - Movement disorder [Unknown]
  - White blood cell count decreased [Not Recovered/Not Resolved]
  - Platelet count decreased [Not Recovered/Not Resolved]
  - Abdominal distension [Recovered/Resolved]
  - Sedation [Unknown]
  - Haemoglobin decreased [Not Recovered/Not Resolved]
  - Depressed mood [Unknown]
  - Nausea [Recovered/Resolved]
  - Arthroscopic surgery [Unknown]
  - Confusional state [Unknown]
  - Malaise [Recovered/Resolved]

NARRATIVE: CASE EVENT DATE: 2018
